FAERS Safety Report 14363875 (Version 1)
Quarter: 2018Q1

REPORT INFORMATION
  Report Type: Spontaneous
  Country: US (occurrence: US)
  Receive Date: 20180108
  Receipt Date: 20180108
  Transmission Date: 20180509
  Serious: No
  Sender: FDA-Public Use
  Company Number: US-BAYER-2018-003902

PATIENT
  Age: 73 Year
  Sex: Male
  Weight: 76.96 kg

DRUGS (2)
  1. ASPIRIN. [Concomitant]
     Active Substance: ASPIRIN
  2. ALEVE [Suspect]
     Active Substance: NAPROXEN SODIUM
     Indication: PAIN
     Dosage: 1 OR 1/2 CAPLET ONCE DAILY
     Route: 048
     Dates: start: 201710

REACTIONS (3)
  - Inappropriate schedule of drug administration [Unknown]
  - Urinary incontinence [Not Recovered/Not Resolved]
  - Incorrect dose administered [Unknown]

NARRATIVE: CASE EVENT DATE: 201710
